FAERS Safety Report 19381129 (Version 3)
Quarter: 2021Q3

REPORT INFORMATION
  Report Type: Spontaneous
  Country: GB (occurrence: GB)
  Receive Date: 20210607
  Receipt Date: 20210712
  Transmission Date: 20211014
  Serious: Yes (Death, Hospitalization, Other)
  Sender: FDA-Public Use
  Company Number: GB-MYLANLABS-2021M1032676

PATIENT
  Age: 72 Year
  Sex: Male

DRUGS (1)
  1. CLOZARIL [Suspect]
     Active Substance: CLOZAPINE
     Indication: SCHIZOPHRENIA
     Dosage: UNK
     Route: 048
     Dates: start: 20091003

REACTIONS (21)
  - Malaise [Unknown]
  - Hyponatraemia [Unknown]
  - Acute myocardial infarction [Unknown]
  - Haematocrit decreased [Recovering/Resolving]
  - Infrequent bowel movements [Unknown]
  - Alanine aminotransferase increased [Unknown]
  - Lymphocyte count decreased [Not Recovered/Not Resolved]
  - Mean cell haemoglobin increased [Recovering/Resolving]
  - Mean cell haemoglobin concentration increased [Recovered/Resolved]
  - Chest pain [Unknown]
  - Red blood cell count decreased [Not Recovered/Not Resolved]
  - Haemoglobin decreased [Not Recovered/Not Resolved]
  - Neutrophil count increased [Recovering/Resolving]
  - Eosinophil count decreased [Not Recovered/Not Resolved]
  - White blood cell count increased [Recovering/Resolving]
  - Death [Fatal]
  - Cardiac failure [Unknown]
  - Coma scale abnormal [Unknown]
  - Neutropenia [Recovered/Resolved]
  - Lower respiratory tract infection [Unknown]
  - Monocyte count increased [Recovered/Resolved]

NARRATIVE: CASE EVENT DATE: 20210528
